FAERS Safety Report 15363332 (Version 4)
Quarter: 2019Q1

REPORT INFORMATION
  Report Type: Spontaneous
  Country: JP (occurrence: JP)
  Receive Date: 20180907
  Receipt Date: 20190204
  Transmission Date: 20190417
  Serious: Yes (Death, Life-Threatening, Hospitalization, Other)
  Sender: FDA-Public Use
  Company Number: JP-SA-2018SA243043

PATIENT
  Age: 67 Year
  Sex: Male
  Weight: 68 kg

DRUGS (33)
  1. LEVOFOLINATE YAKULT [Suspect]
     Active Substance: LEVOLEUCOVORIN CALCIUM
     Dosage: 340 MG, QD
     Route: 041
     Dates: start: 20141029, end: 20141029
  2. LEVOFOLINATE YAKULT [Suspect]
     Active Substance: LEVOLEUCOVORIN CALCIUM
     Dosage: 340 MG, QD
     Route: 041
     Dates: start: 20141120, end: 20141120
  3. 5-FU [FLUOROURACIL] [Suspect]
     Active Substance: FLUOROURACIL
     Dosage: 4100 MG, QOD
     Route: 041
     Dates: start: 20141120, end: 20141120
  4. 5-FU [FLUOROURACIL] [Suspect]
     Active Substance: FLUOROURACIL
     Dosage: 4100 MG, QOD
     Route: 041
     Dates: start: 20150210, end: 20150210
  5. VECTIBIX [Concomitant]
     Active Substance: PANITUMUMAB
     Indication: METASTASES TO LUNG
  6. DEXART [Concomitant]
     Active Substance: DEXAMETHASONE SODIUM PHOSPHATE
     Dosage: UNK
     Route: 065
     Dates: start: 20140827, end: 20150512
  7. ELPLAT [Suspect]
     Active Substance: OXALIPLATIN
     Indication: METASTASES TO LYMPH NODES
     Dosage: 140 MG, QD
     Route: 041
     Dates: start: 20141007, end: 20141007
  8. 5-FU [FLUOROURACIL] [Suspect]
     Active Substance: FLUOROURACIL
     Indication: METASTASES TO LUNG
     Dosage: 4100 MG, QOD
     Route: 041
     Dates: start: 20140827, end: 20140827
  9. 5-FU [FLUOROURACIL] [Suspect]
     Active Substance: FLUOROURACIL
     Dosage: 4100 MG, QOD
     Route: 041
     Dates: start: 20150512, end: 20150512
  10. KYTRIL [Concomitant]
     Active Substance: GRANISETRON HYDROCHLORIDE
     Dosage: UNK
     Route: 065
     Dates: start: 20140827, end: 20150512
  11. 5-FU [FLUOROURACIL] [Suspect]
     Active Substance: FLUOROURACIL
     Dosage: 4100 MG, QOD
     Route: 041
     Dates: start: 20141211, end: 20141211
  12. ELPLAT [Suspect]
     Active Substance: OXALIPLATIN
     Dosage: 140 MG, QD
     Route: 041
     Dates: start: 20141211, end: 20141211
  13. ELPLAT [Suspect]
     Active Substance: OXALIPLATIN
     Indication: RECTAL CANCER
     Dosage: 140 MG, QD
     Route: 041
     Dates: start: 20140827, end: 20140827
  14. LEVOFOLINATE YAKULT [Suspect]
     Active Substance: LEVOLEUCOVORIN CALCIUM
     Indication: METASTASES TO LYMPH NODES
     Dosage: 340 MG, QD
     Route: 041
     Dates: start: 20141007, end: 20141007
  15. 5-FU [FLUOROURACIL] [Suspect]
     Active Substance: FLUOROURACIL
     Indication: RECTAL CANCER
     Dosage: 680 MG, QCY
     Route: 040
     Dates: start: 20140827, end: 20140827
  16. VECTIBIX [Concomitant]
     Active Substance: PANITUMUMAB
     Indication: RECTAL CANCER
  17. ELPLAT [Suspect]
     Active Substance: OXALIPLATIN
     Dosage: 140 MG, QD
     Route: 041
     Dates: start: 20150108, end: 20150108
  18. ELPLAT [Suspect]
     Active Substance: OXALIPLATIN
     Dosage: 140 MG, QD
     Route: 065
     Dates: start: 20150512, end: 20150512
  19. LEVOFOLINATE YAKULT [Suspect]
     Active Substance: LEVOLEUCOVORIN CALCIUM
     Indication: METASTASES TO LUNG
     Dosage: 340 MG, QD
     Route: 041
     Dates: start: 20140917, end: 20140917
  20. LEVOFOLINATE YAKULT [Suspect]
     Active Substance: LEVOLEUCOVORIN CALCIUM
     Dosage: 340 MG, QD
     Route: 041
     Dates: start: 20141211, end: 20141211
  21. 5-FU [FLUOROURACIL] [Suspect]
     Active Substance: FLUOROURACIL
     Dosage: 4100 MG, QOD
     Route: 041
     Dates: start: 20141029, end: 20141029
  22. 5-FU [FLUOROURACIL] [Suspect]
     Active Substance: FLUOROURACIL
     Dosage: 4100 MG, QOD
     Route: 041
     Dates: start: 20150108, end: 20150108
  23. ELPLAT [Suspect]
     Active Substance: OXALIPLATIN
     Indication: METASTASES TO LUNG
     Dosage: 140 MG, QD
     Route: 041
     Dates: start: 20140917, end: 20140917
  24. ELPLAT [Suspect]
     Active Substance: OXALIPLATIN
     Dosage: 140 MG, QD
     Route: 041
     Dates: start: 20141120, end: 20141120
  25. LEVOFOLINATE YAKULT [Suspect]
     Active Substance: LEVOLEUCOVORIN CALCIUM
     Indication: RECTAL CANCER
     Dosage: 340 MG, QD
     Route: 041
     Dates: start: 20140827, end: 20140827
  26. ELPLAT [Suspect]
     Active Substance: OXALIPLATIN
     Dosage: 140 MG, QD
     Route: 041
     Dates: start: 20141029, end: 20141029
  27. ELPLAT [Suspect]
     Active Substance: OXALIPLATIN
     Dosage: 140 MG, QD
     Route: 041
     Dates: start: 20150210, end: 20150210
  28. LEVOFOLINATE YAKULT [Suspect]
     Active Substance: LEVOLEUCOVORIN CALCIUM
     Dosage: 340 MG, QD
     Route: 041
     Dates: start: 20150108, end: 20150108
  29. LEVOFOLINATE YAKULT [Suspect]
     Active Substance: LEVOLEUCOVORIN CALCIUM
     Dosage: 340 MG, QD
     Route: 041
     Dates: start: 20150210, end: 20150210
  30. LEVOFOLINATE YAKULT [Suspect]
     Active Substance: LEVOLEUCOVORIN CALCIUM
     Dosage: 340 MG, QD
     Route: 041
     Dates: start: 20150512, end: 20150512
  31. 5-FU [FLUOROURACIL] [Suspect]
     Active Substance: FLUOROURACIL
     Indication: METASTASES TO LYMPH NODES
     Dosage: 4100 MG, QOD
     Route: 041
     Dates: start: 20140917, end: 20140917
  32. 5-FU [FLUOROURACIL] [Suspect]
     Active Substance: FLUOROURACIL
     Dosage: 4100 MG, QOD
     Route: 041
     Dates: start: 20141007, end: 20141007
  33. VECTIBIX [Concomitant]
     Active Substance: PANITUMUMAB
     Indication: METASTASES TO LYMPH NODES
     Dosage: UNK
     Route: 065
     Dates: start: 20140827, end: 20150512

REACTIONS (10)
  - Pain [Unknown]
  - Condition aggravated [Fatal]
  - Dysgeusia [Not Recovered/Not Resolved]
  - Tumour necrosis [Unknown]
  - Anal abscess [Unknown]
  - Infective spondylitis [Recovering/Resolving]
  - Neutropenia [Recovering/Resolving]
  - Infective aneurysm [Recovered/Resolved]
  - Abdominal abscess [Recovering/Resolving]
  - Pyrexia [Unknown]

NARRATIVE: CASE EVENT DATE: 20140304
